FAERS Safety Report 7283958-5 (Version None)
Quarter: 2011Q1

REPORT INFORMATION
  Report Type: 
  Country: None (occurrence: None)
  Receive Date: 20110209
  Receipt Date: 20110131
  Transmission Date: 20110831
  Serious: Yes (Hospitalization)
  Sender: FDA-Public Use
  Company Number: BR-ASTRAZENECA-2011SE05689

PATIENT
  Age: 61 Year
  Sex: Female
  Weight: 77 kg

DRUGS (5)
  1. ARIMIDEX [Suspect]
     Indication: BREAST CANCER
     Route: 048
     Dates: start: 20081201
  2. ATACAND HCT [Suspect]
     Indication: HYPERTENSION
     Dosage: 16/12.5 MG DAILY
     Route: 048
     Dates: start: 20070101, end: 20101201
  3. CALCIUM [Concomitant]
     Indication: BONE DISORDER
     Route: 048
     Dates: start: 20081201
  4. ATACAND COMB [Suspect]
     Indication: HYPERTENSION
     Dosage: 16/5 MG DAILY
     Route: 048
     Dates: start: 20101201
  5. ATACAND HCT [Suspect]
     Dosage: 16/12.5 MG
     Route: 048

REACTIONS (9)
  - DIZZINESS [None]
  - BLOOD CHOLESTEROL INCREASED [None]
  - BLOOD PRESSURE INADEQUATELY CONTROLLED [None]
  - ASTHENIA [None]
  - BREAST CANCER [None]
  - HYPOTENSION [None]
  - ARTHRALGIA [None]
  - PAIN IN EXTREMITY [None]
  - OEDEMA PERIPHERAL [None]
